FAERS Safety Report 5768191-8 (Version None)
Quarter: 2008Q2

REPORT INFORMATION
  Report Type: 
  Country: None (occurrence: None)
  Receive Date: 20080609
  Receipt Date: 20080527
  Transmission Date: 20081010
  Serious: Yes (Life-Threatening, Hospitalization)
  Sender: FDA-Public Use
  Company Number: 2008AL006252

PATIENT
  Age: 73 Year
  Sex: Female

DRUGS (5)
  1. METFORMIN HYDROCHLORIDE [Suspect]
     Indication: DIABETES MELLITUS
     Dosage: 500 MG; PO
     Route: 048
     Dates: start: 20061025, end: 20080414
  2. DIAMICRON [Concomitant]
  3. SIMVASTATIN [Concomitant]
  4. METOPROLOL [Concomitant]
  5. COZAAR [Concomitant]

REACTIONS (3)
  - DIALYSIS [None]
  - LACTIC ACIDOSIS [None]
  - RENAL FAILURE [None]
